FAERS Safety Report 20999779 (Version 6)
Quarter: 2023Q4

REPORT INFORMATION
  Report Type: Spontaneous
  Country: US (occurrence: US)
  Receive Date: 20220623
  Receipt Date: 20231120
  Transmission Date: 20240110
  Serious: No
  Sender: FDA-Public Use
  Company Number: US-PFIZER INC-202200794161

PATIENT
  Age: 78 Year
  Sex: Female

DRUGS (3)
  1. IBRANCE [Suspect]
     Active Substance: PALBOCICLIB
     Indication: Breast cancer female
     Dosage: ONCE DAILY WITH FOOD 21 DAYS ON 7 DAYS OFF
     Route: 048
  2. IBRANCE [Suspect]
     Active Substance: PALBOCICLIB
     Dosage: 100 MG
  3. IBRANCE [Suspect]
     Active Substance: PALBOCICLIB
     Dosage: TAKE ONE (1) TABLET BY MOUTH ONCE DAILY WITH OR WITHOUT FOOD FOR 21 DAYS ON AND 7 DAYS OFF
     Route: 048

REACTIONS (2)
  - Tremor [Unknown]
  - Product prescribing error [Unknown]
